FAERS Safety Report 7083692-0 (Version None)
Quarter: 2010Q4

REPORT INFORMATION
  Report Type: 
  Country: None (occurrence: None)
  Receive Date: 20101103
  Receipt Date: 20101103
  Transmission Date: 20110411
  Serious: Yes (Hospitalization)
  Sender: FDA-Public Use
  Company Number: None

PATIENT
  Age: 1 Year
  Sex: Female
  Weight: 8.1647 kg

DRUGS (1)
  1. HYLAND'S TEETHING TABLETS HYLAND'S [Suspect]
     Indication: TEETHING
     Dosage: 3 TABLETS PO
     Route: 048

REACTIONS (3)
  - HEART RATE INCREASED [None]
  - LETHARGY [None]
  - RESPIRATORY RATE INCREASED [None]
